FAERS Safety Report 8478183-6 (Version None)
Quarter: 2012Q2

REPORT INFORMATION
  Report Type: 
  Country: None (occurrence: None)
  Receive Date: 20120629
  Receipt Date: 20120625
  Transmission Date: 20120825
  Serious: Yes (Hospitalization)
  Sender: FDA-Public Use
  Company Number: PHEH2012US012353

PATIENT
  Age: 67 Year
  Sex: Female
  Weight: 63 kg

DRUGS (10)
  1. RECLAST [Suspect]
     Indication: OSTEOPOROSIS
     Dosage: 5 MG/YEAR
     Route: 042
     Dates: start: 20120604
  2. VITAMIN D [Concomitant]
  3. FLEXERIL [Concomitant]
  4. LEXAPRO [Concomitant]
  5. CALCIUM [Concomitant]
  6. ALBUTEROL [Concomitant]
  7. BENICAR [Concomitant]
  8. NEURONTIN [Concomitant]
  9. ATIVAN [Concomitant]
  10. NORVASC [Concomitant]

REACTIONS (10)
  - PARAESTHESIA [None]
  - PYREXIA [None]
  - BLOOD DISORDER [None]
  - WHITE BLOOD CELL COUNT DECREASED [None]
  - PAIN IN EXTREMITY [None]
  - DROP ATTACKS [None]
  - BACK PAIN [None]
  - PLATELET COUNT DECREASED [None]
  - MYALGIA [None]
  - CHEST DISCOMFORT [None]
